FAERS Safety Report 8208938-4 (Version None)
Quarter: 2012Q1

REPORT INFORMATION
  Report Type: 
  Country: None (occurrence: None)
  Receive Date: 20120314
  Receipt Date: 20120312
  Transmission Date: 20120608
  Serious: Yes (Other)
  Sender: FDA-Public Use
  Company Number: PL-ROCHE-1048330

PATIENT
  Sex: Female
  Weight: 62 kg

DRUGS (1)
  1. XELODA [Suspect]
     Indication: COLORECTAL CANCER METASTATIC
     Dosage: DOSE: 4150 MG/DAY
     Route: 048
     Dates: start: 20111012

REACTIONS (1)
  - ANGIOEDEMA [None]
